FAERS Safety Report 16361254 (Version 2)
Quarter: 2020Q1

REPORT INFORMATION
  Report Type: Spontaneous
  Country: JP (occurrence: JP)
  Receive Date: 20190528
  Receipt Date: 20200210
  Transmission Date: 20200409
  Serious: Yes (Death, Other)
  Sender: FDA-Public Use
  Company Number: JP-ASTELLAS-2019JP009783

PATIENT
  Age: 52 Year
  Sex: Female

DRUGS (6)
  1. PROGRAF [Suspect]
     Active Substance: TACROLIMUS
     Indication: GRAFT VERSUS HOST DISEASE
     Dosage: UNK UNK, UNKNOWN FREQ.
     Route: 048
  2. METHYLPREDNISOLONE. [Concomitant]
     Active Substance: METHYLPREDNISOLONE
     Indication: PRODUCT USED FOR UNKNOWN INDICATION
     Dosage: UNK UNK, UNKNOWN FREQ.
     Route: 065
  3. XOSPATA [Suspect]
     Active Substance: GILTERITINIB
     Indication: ACUTE MYELOID LEUKAEMIA RECURRENT
     Route: 048
     Dates: start: 20190126
  4. STRONGER NEO-MINOPHAGEN C [GLYCINE;GLYCYRRHIZIC ACID;METHIONINE] [Concomitant]
     Indication: PRODUCT USED FOR UNKNOWN INDICATION
     Dosage: UNK UNK, UNKNOWN FREQ.
     Route: 065
  5. FUNGUARD [Suspect]
     Active Substance: MICAFUNGIN SODIUM
     Indication: FUNGAL INFECTION
     Dosage: 150 MG/DAY, UNKNOWN FREQ.
     Route: 041
  6. URSO DS [Concomitant]
     Active Substance: URSODIOL
     Indication: PRODUCT USED FOR UNKNOWN INDICATION
     Dosage: UNK UNK, UNKNOWN FREQ.
     Route: 065

REACTIONS (5)
  - Chest pain [Unknown]
  - Hepatic function abnormal [Unknown]
  - Graft versus host disease [Unknown]
  - Thrombotic microangiopathy [Fatal]
  - Blood lactate dehydrogenase increased [Unknown]
